FAERS Safety Report 10853671 (Version 1)
Quarter: 2015Q1

REPORT INFORMATION
  Report Type: Spontaneous
  Country: US (occurrence: None)
  Receive Date: 20150218
  Receipt Date: 20150218
  Transmission Date: 20150721
  Serious: Yes (Hospitalization)
  Sender: FDA-Public Use
  Company Number: None

PATIENT
  Age: 92 Year
  Sex: Male
  Weight: 75.5 kg

DRUGS (1)
  1. METFORMIN [Suspect]
     Active Substance: METFORMIN HYDROCHLORIDE
     Dosage: 1500 MG AM PO
     Route: 048
     Dates: start: 20140528, end: 20141028

REACTIONS (5)
  - Diarrhoea [None]
  - Faeces discoloured [None]
  - Nausea [None]
  - Faecal incontinence [None]
  - Dizziness [None]

NARRATIVE: CASE EVENT DATE: 20141028
